FAERS Safety Report 20826648 (Version 1)
Quarter: 2022Q2

REPORT INFORMATION
  Report Type: Spontaneous
  Country: NO (occurrence: NO)
  Receive Date: 20220513
  Receipt Date: 20220513
  Transmission Date: 20220721
  Serious: Yes (Life-Threatening, Hospitalization, Disabling, Other)
  Sender: FDA-Public Use
  Company Number: None

PATIENT

DRUGS (2)
  1. IBUPROFEN [Suspect]
     Active Substance: IBUPROFEN
     Indication: Product used for unknown indication
     Dosage: 1 DF, 1 DOSAGE FORM ONCE/SINGLE (TOTAL)
     Route: 048
     Dates: start: 2007, end: 2007
  2. AMITRIPTYLINE HYDROCHLORIDE [Concomitant]
     Active Substance: AMITRIPTYLINE HYDROCHLORIDE
     Indication: Product used for unknown indication
     Dosage: WAS MEANT TO INCREASE THE DOSE GRADUALLY
     Route: 065
     Dates: end: 202202

REACTIONS (3)
  - Abdominal pain [Recovered/Resolved with Sequelae]
  - Gastric pH decreased [Recovered/Resolved with Sequelae]
  - Gastric ulcer [Unknown]

NARRATIVE: CASE EVENT DATE: 20080320
